FAERS Safety Report 19922146 (Version 5)
Quarter: 2022Q1

REPORT INFORMATION
  Report Type: Report from Study
  Country: PL (occurrence: PL)
  Receive Date: 20211006
  Receipt Date: 20220215
  Transmission Date: 20220423
  Serious: Yes (Other)
  Sender: FDA-Public Use
  Company Number: PL-002147023-NVSC2021PL196246

PATIENT
  Age: 43 Year
  Sex: Male

DRUGS (25)
  1. GABAPENTIN [Suspect]
     Active Substance: GABAPENTIN
     Indication: Product used for unknown indication
     Dosage: UNK
     Route: 065
  2. ACETAMINOPHEN [Suspect]
     Active Substance: ACETAMINOPHEN
     Indication: Diabetic neuropathy
     Dosage: 2 DOSAGE FORM, ONCE A DAY (2 G DAILY)
     Route: 065
  3. ACETAMINOPHEN [Suspect]
     Active Substance: ACETAMINOPHEN
     Indication: Neuralgia
  4. ACETAMINOPHEN [Suspect]
     Active Substance: ACETAMINOPHEN
     Indication: Pain
  5. DULOXETINE [Suspect]
     Active Substance: DULOXETINE
     Indication: Diabetic neuropathy
     Dosage: 60 MILLIGRAM, ONCE A DAY (IN THE MORNING)
     Route: 065
  6. DULOXETINE [Suspect]
     Active Substance: DULOXETINE
     Indication: Neuralgia
  7. DULOXETINE [Suspect]
     Active Substance: DULOXETINE
     Indication: Pain
  8. PREGABALIN [Suspect]
     Active Substance: PREGABALIN
     Indication: Diabetic neuropathy
     Dosage: 300 MILLIGRAM, ONCE A DAY
     Route: 065
  9. PREGABALIN [Suspect]
     Active Substance: PREGABALIN
     Indication: Neuralgia
     Dosage: GRADUAL REDUCTION
     Route: 065
  10. TRAMADOL [Suspect]
     Active Substance: TRAMADOL
     Indication: Diabetic neuropathy
     Dosage: 2 DOSAGE FORM, DAILY (400 MG DAILY)
     Route: 065
  11. TRAMADOL [Suspect]
     Active Substance: TRAMADOL
     Indication: Neuralgia
  12. TRAMADOL [Suspect]
     Active Substance: TRAMADOL
     Indication: Pain
  13. CARBAMAZEPINE [Suspect]
     Active Substance: CARBAMAZEPINE
     Indication: Diabetic neuropathy
     Dosage: 2 DOSAGE FORM, ONCE A DAY (800 MG DAILY)
     Route: 065
  14. CARBAMAZEPINE [Suspect]
     Active Substance: CARBAMAZEPINE
     Indication: Neuralgia
  15. CARBAMAZEPINE [Suspect]
     Active Substance: CARBAMAZEPINE
     Indication: Pain
  16. PANCRELIPASE [Suspect]
     Active Substance: PANCRELIPASE
     Indication: Diabetic neuropathy
     Dosage: 1600 UNITS 3 TIMES A DAY
     Route: 065
  17. PANCRELIPASE [Suspect]
     Active Substance: PANCRELIPASE
     Indication: Neuralgia
  18. PANCRELIPASE [Suspect]
     Active Substance: PANCRELIPASE
     Indication: Pancreatitis chronic
  19. BUPRENORPHINE [Concomitant]
     Active Substance: BUPRENORPHINE
     Indication: Diabetic neuropathy
     Dosage: 35 MICROGRAM, EVERY HOUR
     Route: 062
  20. BUPRENORPHINE [Concomitant]
     Active Substance: BUPRENORPHINE
     Indication: Neuralgia
     Dosage: UNK, GRADUAL REDUCTION
     Route: 065
  21. BUPRENORPHINE [Concomitant]
     Active Substance: BUPRENORPHINE
     Indication: Pain
  22. PANCREATIN [Concomitant]
     Active Substance: PANCRELIPASE
     Indication: Diabetic neuropathy
     Dosage: UNK, ONCE A DAY
     Route: 065
  23. TRAZODONE [Concomitant]
     Active Substance: TRAZODONE HYDROCHLORIDE
     Indication: Diabetic neuropathy
     Dosage: UNK
     Route: 065
  24. TRAZODONE [Concomitant]
     Active Substance: TRAZODONE HYDROCHLORIDE
     Indication: Sleep disorder
  25. CAPSAICIN [Concomitant]
     Active Substance: CAPSAICIN
     Indication: Pain
     Dosage: 8 PERCENT
     Route: 065

REACTIONS (7)
  - Dizziness [Recovered/Resolved]
  - Oedema peripheral [Recovered/Resolved]
  - Drug ineffective [Recovered/Resolved]
  - Peripheral swelling [Recovered/Resolved]
  - Drug intolerance [Recovered/Resolved]
  - Joint swelling [Recovering/Resolving]
  - Sleep disorder [Unknown]
